FAERS Safety Report 9909652 (Version 3)
Quarter: 2014Q1

REPORT INFORMATION
  Report Type: Report from Study
  Country: PL (occurrence: PL)
  Receive Date: 20140219
  Receipt Date: 20140227
  Transmission Date: 20141002
  Serious: Yes (Hospitalization)
  Sender: FDA-Public Use
  Company Number: PL-GLAXOSMITHKLINE-B0970044A

PATIENT
  Age: 81 Year
  Sex: Male
  Weight: 63 kg

DRUGS (7)
  1. FLUTICASONE FUROATE [Suspect]
     Indication: CHRONIC OBSTRUCTIVE PULMONARY DISEASE
     Dates: start: 20120613
  2. ATENOLOL [Concomitant]
     Indication: CARDIAC FAILURE
     Route: 048
     Dates: end: 20140211
  3. ACARD [Concomitant]
     Indication: CARDIOVASCULAR EVENT PROPHYLAXIS
     Dosage: 75MG PER DAY
     Route: 048
     Dates: end: 20140211
  4. PRESTARIUM [Concomitant]
     Indication: HYPERTENSION
     Dosage: 10MG PER DAY
     Route: 048
     Dates: end: 20140211
  5. UNKNOWN DRUG [Concomitant]
     Indication: HYPERLIPIDAEMIA
     Dosage: 20MG PER DAY
     Route: 048
     Dates: end: 20140211
  6. FUROSEMID [Concomitant]
     Indication: HYPERTENSION
     Dosage: 40MG PER DAY
     Route: 048
     Dates: end: 20140211
  7. SPIRONOL [Concomitant]
     Indication: HYPERTENSION
     Dosage: 25MG PER DAY
     Route: 048

REACTIONS (1)
  - Pulmonary fibrosis [Recovered/Resolved with Sequelae]
